FAERS Safety Report 24538363 (Version 2)
Quarter: 2024Q4

REPORT INFORMATION
  Report Type: Spontaneous
  Country: CN (occurrence: CN)
  Receive Date: 20241023
  Receipt Date: 20241029
  Transmission Date: 20250115
  Serious: Yes (Other)
  Sender: Haleon PLC
  Company Number: CN-HALEON-2203766

PATIENT
  Age: 28 Year
  Sex: Male

DRUGS (2)
  1. IBUPROFEN [Suspect]
     Active Substance: IBUPROFEN
     Indication: Product used for unknown indication
     Dosage: 6 TO 8 H ONCE
     Route: 048
  2. ACETAMINOPHEN\ASPIRIN\CAFFEINE [Suspect]
     Active Substance: ACETAMINOPHEN\ASPIRIN\CAFFEINE
     Indication: Product used for unknown indication
     Dosage: 6 TO 8 H ONCE
     Route: 048

REACTIONS (13)
  - Rhabdomyolysis [Recovered/Resolved]
  - Renal tubular injury [Recovered/Resolved]
  - Myalgia [Recovered/Resolved]
  - Muscle disorder [Recovered/Resolved]
  - Electrolyte imbalance [Recovered/Resolved]
  - Blood uric acid decreased [Recovered/Resolved]
  - Asthenia [Recovered/Resolved]
  - Myalgia [Recovered/Resolved]
  - Peripheral swelling [Recovered/Resolved]
  - Movement disorder [Recovered/Resolved]
  - Chromaturia [Recovered/Resolved]
  - Urine output decreased [Recovered/Resolved]
  - Condition aggravated [Recovered/Resolved]
